FAERS Safety Report 11277484 (Version 2)
Quarter: 2015Q4

REPORT INFORMATION
  Report Type: Report from Study
  Country: US (occurrence: NO)
  Receive Date: 20150716
  Receipt Date: 20151006
  Transmission Date: 20160304
  Serious: Yes (Death)
  Sender: FDA-Public Use
  Company Number: NO-FRI-1000078167

PATIENT
  Age: 71 Year
  Sex: Male
  Weight: 79 kg

DRUGS (1)
  1. ROFLUMILAST [Suspect]
     Active Substance: ROFLUMILAST
     Indication: CHRONIC OBSTRUCTIVE PULMONARY DISEASE
     Dosage: 500 MCG
     Route: 048
     Dates: start: 20140123, end: 20141011

REACTIONS (1)
  - Death [Fatal]

NARRATIVE: CASE EVENT DATE: 20141011
